FAERS Safety Report 8781729 (Version 4)
Quarter: 2012Q4

REPORT INFORMATION
  Report Type: 
  Country: US (occurrence: US)
  Receive Date: 20120913
  Receipt Date: 20121023
  Transmission Date: 20130627
  Serious: Yes (Death)
  Sender: FDA-Public Use
  Company Number: US-GILEAD-2012-0060945

PATIENT
  Sex: Male

DRUGS (16)
  1. RANEXA [Suspect]
     Indication: ANGINA PECTORIS
     Dosage: 500 mg, UNK
     Dates: start: 20120814
  2. LASIX                              /00032601/ [Concomitant]
  3. ZOCOR [Concomitant]
  4. ZETIA [Concomitant]
  5. CARVEDIOL [Concomitant]
  6. EFFEXOR [Concomitant]
  7. FLOMAX                             /01280302/ [Concomitant]
  8. FERROUS SULFATE [Concomitant]
  9. IMDUR [Concomitant]
  10. K-DUR [Concomitant]
  11. LANTUS [Concomitant]
  12. METFORMIN [Concomitant]
  13. NORVASC [Concomitant]
  14. ASA [Concomitant]
  15. NOVOLOG [Concomitant]
  16. NTG [Concomitant]

REACTIONS (1)
  - Sudden cardiac death [Fatal]
